FAERS Safety Report 9079540 (Version 1)
Quarter: 2013Q1

REPORT INFORMATION
  Report Type: Spontaneous
  Country: US (occurrence: US)
  Receive Date: 20130130
  Receipt Date: 20130130
  Transmission Date: 20140127
  Serious: No
  Sender: FDA-Public Use
  Company Number: US-009507513-1301USA010769

PATIENT
  Sex: Female

DRUGS (1)
  1. DR. SCHOLL^S [Suspect]
     Indication: PRODUCT USED FOR UNKNOWN INDICATION
     Dosage: UNK, UNKNOWN
     Route: 048
     Dates: start: 20120710

REACTIONS (1)
  - Pain [Not Recovered/Not Resolved]
